FAERS Safety Report 5171343-1 (Version None)
Quarter: 2006Q4

REPORT INFORMATION
  Report Type: 
  Country: None (occurrence: None)
  Receive Date: 20061213
  Receipt Date: 20050909
  Transmission Date: 20070319
  Serious: Yes (Other)
  Sender: FDA-Public Use
  Company Number: US-AMGEN-US149747

PATIENT
  Sex: Male
  Weight: 74.5 kg

DRUGS (18)
  1. ENBREL [Suspect]
     Indication: RHEUMATOID ARTHRITIS
     Dates: start: 19990826, end: 20050619
  2. METHOTREXATE [Suspect]
     Route: 048
     Dates: start: 19980101, end: 20050101
  3. NAPROSYN [Concomitant]
     Route: 048
  4. PLAQUENIL [Concomitant]
     Route: 048
  5. SULFASALAZINE [Concomitant]
  6. METOPROLOL SUCCINATE [Concomitant]
     Route: 048
  7. PLAVIX [Concomitant]
     Route: 048
  8. ZOCOR [Concomitant]
     Route: 048
  9. LEVOTHROID [Concomitant]
     Route: 048
  10. PREDNISONE TAB [Concomitant]
     Route: 048
  11. NITROGLYCERIN [Concomitant]
     Route: 060
  12. ASPIRIN [Concomitant]
  13. CALCIUM WITH VITAMIN D [Concomitant]
  14. VITAMIN CAP [Concomitant]
     Route: 048
  15. FOLIC ACID [Concomitant]
     Route: 048
  16. ZANTAC [Concomitant]
     Route: 048
  17. GLUCOSAMINE [Concomitant]
  18. CHONDROITIN [Concomitant]

REACTIONS (1)
  - LYMPHOCYTIC LYMPHOMA [None]
